FAERS Safety Report 17262891 (Version 1)
Quarter: 2020Q1

REPORT INFORMATION
  Report Type: Spontaneous
  Country: IT (occurrence: IT)
  Receive Date: 20200113
  Receipt Date: 20200113
  Transmission Date: 20200409
  Serious: Yes (Hospitalization)
  Sender: FDA-Public Use
  Company Number: IT-MYLANLABS-2020M1002757

PATIENT
  Age: 85 Year
  Sex: Female

DRUGS (1)
  1. AMIODARONE MYLAN 200 MG COMPRESSE [Suspect]
     Active Substance: AMIODARONE
     Indication: ARRHYTHMIA
     Dosage: UNK

REACTIONS (3)
  - Syncope [Not Recovered/Not Resolved]
  - Tremor [Not Recovered/Not Resolved]
  - Seizure [Not Recovered/Not Resolved]

NARRATIVE: CASE EVENT DATE: 20190911
